FAERS Safety Report 6385417-0 (Version None)
Quarter: 2009Q4

REPORT INFORMATION
  Report Type: 
  Country: None (occurrence: None)
  Receive Date: 20091002
  Receipt Date: 20080904
  Transmission Date: 20100525
  Serious: No
  Sender: FDA-Public Use
  Company Number: US-ASTRAZENECA-2008UW18294

PATIENT
  Age: 66 Year
  Sex: Female
  Weight: 136.1 kg

DRUGS (9)
  1. ARIMIDEX [Suspect]
     Indication: BREAST CANCER
     Route: 048
     Dates: start: 20070101
  2. COUMADIN [Concomitant]
  3. WELLBUTRIN [Concomitant]
  4. METFORMIN [Concomitant]
  5. TRIAMTERENE [Concomitant]
  6. LEVOXYL [Concomitant]
  7. BENAZEPRIL HYDROCHLORIDE [Concomitant]
  8. CITALOPRAM [Concomitant]
  9. PHENAZOPYRIDINE HCL TAB [Concomitant]

REACTIONS (3)
  - HOT FLUSH [None]
  - MELANOCYTIC NAEVUS [None]
  - WEIGHT INCREASED [None]
